FAERS Safety Report 5566509-2 (Version None)
Quarter: 2007Q4

REPORT INFORMATION
  Report Type: 
  Country: None (occurrence: None)
  Receive Date: 20071219
  Receipt Date: 20071214
  Transmission Date: 20080405
  Serious: Yes (Death)
  Sender: FDA-Public Use
  Company Number: CA-ASTRAZENECA-2007UW28453

PATIENT
  Age: 87 Year
  Sex: Female

DRUGS (6)
  1. SEROQUEL [Suspect]
     Route: 048
     Dates: start: 20070901, end: 20070917
  2. SEROQUEL [Suspect]
     Route: 048
     Dates: start: 20070917, end: 20070919
  3. ADALAT CC [Concomitant]
     Route: 048
  4. TENORMIN [Concomitant]
     Route: 048
  5. AVAPRO [Concomitant]
     Route: 048
  6. COUMADIN [Concomitant]
     Indication: ATRIAL FIBRILLATION
     Route: 048
     Dates: start: 20070301, end: 20070917

REACTIONS (1)
  - DEATH [None]
